FAERS Safety Report 19963628 (Version 5)
Quarter: 2022Q1

REPORT INFORMATION
  Report Type: Report from Study
  Country: JP (occurrence: JP)
  Receive Date: 20211018
  Receipt Date: 20220120
  Transmission Date: 20220423
  Serious: Yes (Other)
  Sender: FDA-Public Use
  Company Number: JP-CELLTRION INC.-2021JP014099

PATIENT

DRUGS (58)
  1. INVESTIGATIONAL BIOSIMILARS [Suspect]
     Active Substance: INVESTIGATIONAL BIOSIMILARS
     Indication: HER2 positive gastric cancer
     Dosage: 380 MG, QD
     Route: 041
     Dates: start: 20200616, end: 20200616
  2. INVESTIGATIONAL BIOSIMILARS [Suspect]
     Active Substance: INVESTIGATIONAL BIOSIMILARS
     Dosage: 285 MG, QD
     Route: 041
     Dates: start: 20200707, end: 20200707
  3. INVESTIGATIONAL BIOSIMILARS [Suspect]
     Active Substance: INVESTIGATIONAL BIOSIMILARS
     Dosage: 285 MG, QD
     Route: 041
     Dates: start: 20200728, end: 20200728
  4. INVESTIGATIONAL BIOSIMILARS [Suspect]
     Active Substance: INVESTIGATIONAL BIOSIMILARS
     Dosage: 285 MG, QD
     Route: 041
     Dates: start: 20200818, end: 20200818
  5. INVESTIGATIONAL BIOSIMILARS [Suspect]
     Active Substance: INVESTIGATIONAL BIOSIMILARS
     Dosage: 291 MG, QD
     Route: 041
     Dates: start: 20200908, end: 20200908
  6. INVESTIGATIONAL BIOSIMILARS [Suspect]
     Active Substance: INVESTIGATIONAL BIOSIMILARS
     Dosage: 291 MG, QD
     Route: 041
     Dates: start: 20200929, end: 20200929
  7. INVESTIGATIONAL BIOSIMILARS [Suspect]
     Active Substance: INVESTIGATIONAL BIOSIMILARS
     Dosage: 291 MG, QD
     Route: 041
     Dates: start: 20201020, end: 20201020
  8. INVESTIGATIONAL BIOSIMILARS [Suspect]
     Active Substance: INVESTIGATIONAL BIOSIMILARS
     Dosage: 291 MG, QD
     Route: 041
     Dates: start: 20201110, end: 20201110
  9. INVESTIGATIONAL BIOSIMILARS [Suspect]
     Active Substance: INVESTIGATIONAL BIOSIMILARS
     Dosage: 291 MG, QD
     Route: 041
     Dates: start: 20201201, end: 20201201
  10. INVESTIGATIONAL BIOSIMILARS [Suspect]
     Active Substance: INVESTIGATIONAL BIOSIMILARS
     Dosage: 291 MG, QD
     Route: 041
     Dates: start: 20201222, end: 20201222
  11. INVESTIGATIONAL BIOSIMILARS [Suspect]
     Active Substance: INVESTIGATIONAL BIOSIMILARS
     Dosage: 291 MG, QD
     Route: 041
     Dates: start: 20210112, end: 20210112
  12. INVESTIGATIONAL BIOSIMILARS [Suspect]
     Active Substance: INVESTIGATIONAL BIOSIMILARS
     Dosage: 291 MG, QD
     Route: 041
     Dates: start: 20210202, end: 20210202
  13. INVESTIGATIONAL BIOSIMILARS [Suspect]
     Active Substance: INVESTIGATIONAL BIOSIMILARS
     Dosage: 300 MG, QD
     Route: 041
     Dates: start: 20210302, end: 20210302
  14. INVESTIGATIONAL BIOSIMILARS [Suspect]
     Active Substance: INVESTIGATIONAL BIOSIMILARS
     Dosage: 300 MG, QD
     Route: 041
     Dates: start: 20210323, end: 20210323
  15. INVESTIGATIONAL BIOSIMILARS [Suspect]
     Active Substance: INVESTIGATIONAL BIOSIMILARS
     Dosage: 300 MG, QD
     Route: 041
     Dates: start: 20210413, end: 20210413
  16. INVESTIGATIONAL BIOSIMILARS [Suspect]
     Active Substance: INVESTIGATIONAL BIOSIMILARS
     Dosage: 411 MG, QD
     Route: 041
     Dates: start: 20210525, end: 20210525
  17. INVESTIGATIONAL BIOSIMILARS [Suspect]
     Active Substance: INVESTIGATIONAL BIOSIMILARS
     Dosage: 308 MG, QD
     Route: 041
     Dates: start: 20210615, end: 20210615
  18. PACLITAXEL [Suspect]
     Active Substance: PACLITAXEL
     Indication: HER2 positive gastric cancer
     Dosage: 117 MG, QD
     Route: 041
     Dates: start: 20200616, end: 20200616
  19. PACLITAXEL [Suspect]
     Active Substance: PACLITAXEL
     Dosage: 117 MG, QD
     Route: 041
     Dates: start: 20200623, end: 20200623
  20. PACLITAXEL [Suspect]
     Active Substance: PACLITAXEL
     Dosage: 117 MG, QD
     Route: 041
     Dates: start: 20200714, end: 20200714
  21. PACLITAXEL [Suspect]
     Active Substance: PACLITAXEL
     Dosage: 117 MG, QD
     Route: 041
     Dates: start: 20200721, end: 20200721
  22. PACLITAXEL [Suspect]
     Active Substance: PACLITAXEL
     Dosage: 117 MG, QD
     Route: 041
     Dates: start: 20200728, end: 20200728
  23. PACLITAXEL [Suspect]
     Active Substance: PACLITAXEL
     Dosage: 117 MG, QD
     Route: 041
     Dates: start: 20200811, end: 20200811
  24. PACLITAXEL [Suspect]
     Active Substance: PACLITAXEL
     Dosage: 117 MG, QD
     Route: 041
     Dates: start: 20200818, end: 20200818
  25. PACLITAXEL [Suspect]
     Active Substance: PACLITAXEL
     Dosage: 117 MG, QD
     Route: 041
     Dates: start: 20200825, end: 20200825
  26. PACLITAXEL [Suspect]
     Active Substance: PACLITAXEL
     Dosage: 118 MG, QD
     Route: 041
     Dates: start: 20200908, end: 20200908
  27. PACLITAXEL [Suspect]
     Active Substance: PACLITAXEL
     Dosage: 118 MG, QD
     Route: 041
     Dates: start: 20200915, end: 20200915
  28. PACLITAXEL [Suspect]
     Active Substance: PACLITAXEL
     Dosage: 118 MG, QD
     Route: 041
     Dates: start: 20201006, end: 20201006
  29. PACLITAXEL [Suspect]
     Active Substance: PACLITAXEL
     Dosage: 118 MG, QD
     Route: 041
     Dates: start: 20201012, end: 20201012
  30. PACLITAXEL [Suspect]
     Active Substance: PACLITAXEL
     Dosage: 118 MG, QD
     Route: 041
     Dates: start: 20201013, end: 20201013
  31. PACLITAXEL [Suspect]
     Active Substance: PACLITAXEL
     Dosage: 118 MG, QD
     Route: 041
     Dates: start: 20201020, end: 20201020
  32. PACLITAXEL [Suspect]
     Active Substance: PACLITAXEL
     Dosage: 118 MG, QD
     Route: 041
     Dates: start: 20201110, end: 20201110
  33. PACLITAXEL [Suspect]
     Active Substance: PACLITAXEL
     Dosage: 118 MG, QD
     Route: 041
     Dates: start: 20201117, end: 20201117
  34. PACLITAXEL [Suspect]
     Active Substance: PACLITAXEL
     Dosage: 118 MG, QD
     Route: 041
     Dates: start: 20201201, end: 20201201
  35. PACLITAXEL [Suspect]
     Active Substance: PACLITAXEL
     Dosage: 118 MG, QD
     Route: 041
     Dates: start: 20201208, end: 20201208
  36. PACLITAXEL [Suspect]
     Active Substance: PACLITAXEL
     Dosage: 118 MG, QD
     Route: 041
     Dates: start: 20201215, end: 20201215
  37. PACLITAXEL [Suspect]
     Active Substance: PACLITAXEL
     Dosage: 118 MG, QD
     Route: 041
     Dates: start: 20210105, end: 20210105
  38. PACLITAXEL [Suspect]
     Active Substance: PACLITAXEL
     Dosage: 118 MG, QD
     Route: 041
     Dates: start: 20210112, end: 20210112
  39. PACLITAXEL [Suspect]
     Active Substance: PACLITAXEL
     Dosage: 118 MG, QD
     Route: 041
     Dates: start: 20210126, end: 20210126
  40. PACLITAXEL [Suspect]
     Active Substance: PACLITAXEL
     Dosage: 118 MG, QD
     Route: 041
     Dates: start: 20210202, end: 20210202
  41. PACLITAXEL [Suspect]
     Active Substance: PACLITAXEL
     Dosage: 118 MG, QD
     Route: 041
     Dates: start: 20210209, end: 20210209
  42. PACLITAXEL [Suspect]
     Active Substance: PACLITAXEL
     Dosage: 119 MG, QD
     Route: 041
     Dates: start: 20210302, end: 20210302
  43. PACLITAXEL [Suspect]
     Active Substance: PACLITAXEL
     Dosage: 119 MG, QD
     Route: 041
     Dates: start: 20210309, end: 20210309
  44. PACLITAXEL [Suspect]
     Active Substance: PACLITAXEL
     Dosage: 119 MG, QD
     Route: 041
     Dates: start: 20210316, end: 20210316
  45. PACLITAXEL [Suspect]
     Active Substance: PACLITAXEL
     Dosage: 119 MG, QD
     Route: 041
     Dates: start: 20210330, end: 20210330
  46. PACLITAXEL [Suspect]
     Active Substance: PACLITAXEL
     Dosage: 119 MG, QD
     Route: 041
     Dates: start: 20210406, end: 20210406
  47. PACLITAXEL [Suspect]
     Active Substance: PACLITAXEL
     Dosage: 119 MG, QD
     Route: 041
     Dates: start: 20210413, end: 20210413
  48. PACLITAXEL [Suspect]
     Active Substance: PACLITAXEL
     Dosage: 119 MG, QD
     Route: 041
     Dates: start: 20210427, end: 20210427
  49. PACLITAXEL [Suspect]
     Active Substance: PACLITAXEL
     Dosage: 119 MG, QD
     Route: 041
     Dates: start: 20210511, end: 20210511
  50. PACLITAXEL [Suspect]
     Active Substance: PACLITAXEL
     Dosage: 121 MG, QD
     Route: 041
     Dates: start: 20210525, end: 20210525
  51. PACLITAXEL [Suspect]
     Active Substance: PACLITAXEL
     Dosage: 121 MG, QD
     Route: 041
     Dates: start: 20210601, end: 20210601
  52. PACLITAXEL [Suspect]
     Active Substance: PACLITAXEL
     Dosage: 121 MG, QD
     Route: 041
     Dates: start: 20210608, end: 20210608
  53. OXALIPLATIN [Suspect]
     Active Substance: OXALIPLATIN
     Indication: HER2 positive gastric cancer
     Route: 065
  54. BILASTINE [Concomitant]
     Active Substance: BILASTINE
     Dosage: UNK
     Dates: start: 20200616, end: 20210507
  55. DIPHENHYDRAMINE [Concomitant]
     Active Substance: DIPHENHYDRAMINE
     Dosage: UNK
     Dates: start: 20200616
  56. OLMESARTAN MEDOXOMIL [Concomitant]
     Active Substance: OLMESARTAN MEDOXOMIL
     Dosage: UNK
     Dates: start: 20200915, end: 20201013
  57. AZILSARTAN KAMEDOXOMIL [Concomitant]
     Active Substance: AZILSARTAN KAMEDOXOMIL
     Dosage: UNK
     Dates: start: 20201013
  58. AMLODIPINE [Concomitant]
     Active Substance: AMLODIPINE BESYLATE
     Dosage: UNK
     Dates: start: 20201228

REACTIONS (13)
  - Hypertension [Not Recovered/Not Resolved]
  - Neutrophil count decreased [Not Recovered/Not Resolved]
  - Vitamin B12 deficiency [Unknown]
  - Aspartate aminotransferase increased [Not Recovered/Not Resolved]
  - Alanine aminotransferase increased [Recovering/Resolving]
  - Peripheral sensory neuropathy [Unknown]
  - White blood cell count decreased [Not Recovered/Not Resolved]
  - Anaemia [Not Recovered/Not Resolved]
  - Diarrhoea [Recovered/Resolved]
  - Diarrhoea [Recovered/Resolved]
  - Dyspepsia [Recovered/Resolved]
  - Neutrophil count decreased [Not Recovered/Not Resolved]
  - Overdose [Unknown]

NARRATIVE: CASE EVENT DATE: 20200616
